FAERS Safety Report 10715053 (Version 1)
Quarter: 2015Q1

REPORT INFORMATION
  Report Type: Report from Study
  Country: US (occurrence: US)
  Receive Date: 20150115
  Receipt Date: 20150115
  Transmission Date: 20150721
  Serious: Yes (Hospitalization, Other)
  Sender: FDA-Public Use
  Company Number: US-GSKJP-US2014029407AA

PATIENT

DRUGS (179)
  1. BLINDED FLUTICASONE PROPIONATE+SALMETEROL XINAFOATE [Suspect]
     Active Substance: FLUTICASONE PROPIONATE\SALMETEROL XINAFOATE
  2. BLINDED OXAZEPAM [Suspect]
     Active Substance: OXAZEPAM
  3. BLINDED PACLITAXEL [Suspect]
     Active Substance: PACLITAXEL
  4. BLINDED PANITUMUMAB [Suspect]
     Active Substance: PANITUMUMAB
  5. BLINDED PARACETAMOL + CAFFEINE [Suspect]
     Active Substance: ACETAMINOPHEN\CAFFEINE
  6. BLINDED PARACETAMOL + PSEUDOEPHEDRINE [Suspect]
     Active Substance: ACETAMINOPHEN\PSEUDOEPHEDRINE
  7. BLINDED PHENYLBUTAZONE [Suspect]
     Active Substance: PHENYLBUTAZONE
  8. PLACEBO [Suspect]
     Active Substance: UNSPECIFIED INGREDIENT
  9. BLINDED PRAVASTATIN SODIUM [Suspect]
     Active Substance: PRAVASTATIN SODIUM
  10. BLINDED PREDNISOLONE [Suspect]
     Active Substance: PREDNISOLONE
  11. BLINDED PREDNISONE [Suspect]
     Active Substance: PREDNISONE
  12. BLINDED PROPAFENONE HYDROCHLORIDE [Suspect]
     Active Substance: PROPAFENONE HYDROCHLORIDE
  13. BLINDED RANITIDINE BISMUTH CITRATE [Suspect]
     Active Substance: RANITIDINE BISMUTH CITRATE
  14. BLINDED RANITIDINE HYDROCHLORIDE [Suspect]
     Active Substance: RANITIDINE HYDROCHLORIDE
  15. BLINDED RETINOL [Suspect]
     Active Substance: RETINOL
  16. BLINDED RITUXIMAB [Suspect]
     Active Substance: RITUXIMAB
  17. BLINDED SALBUTAMOL SULPHATE [Suspect]
     Active Substance: ALBUTEROL SULFATE
  18. BLINDED SALMETEROL XINAFOATE [Suspect]
     Active Substance: SALMETEROL XINAFOATE
  19. BLINDED SERTRALINE HYDROCHLORIDE [Suspect]
     Active Substance: SERTRALINE HYDROCHLORIDE
  20. BLINDED SODIUM NITROPRUSSIDE [Suspect]
     Active Substance: SODIUM NITROPRUSSIDE
  21. BLINDED STAVUDINE [Suspect]
     Active Substance: STAVUDINE
  22. BLINDED SUXAMETHONIUM [Suspect]
     Active Substance: SUCCINYLCHOLINE
  23. BLINDED TESTOSTERONE [Suspect]
     Active Substance: TESTOSTERONE
  24. BLINDED TETRACYCLINE [Suspect]
     Active Substance: TETRACYCLINE
  25. BLINDED THIOGUANINE [Suspect]
     Active Substance: THIOGUANINE
  26. BLINDED TICARCILLIN SODIUM+POTASSIUM CLAVULANATE [Suspect]
     Active Substance: CLAVULANATE POTASSIUM\TICARCILLIN DISODIUM
  27. BLINDED VALSARTAN [Suspect]
     Active Substance: VALSARTAN
  28. BLINDED XYLOMETAZOLINE HYDROCHLORIDE [Suspect]
     Active Substance: XYLOMETAZOLINE HYDROCHLORIDE
  29. BLINDED ZIDOVUDINE [Suspect]
     Active Substance: ZIDOVUDINE
  30. BLINDED ZIDOVUDINE [Suspect]
     Active Substance: ZIDOVUDINE
  31. BLINDED OFLOXACIN [Suspect]
     Active Substance: OFLOXACIN
  32. OMEGA-3-ACID ETHYL ESTERS. [Suspect]
     Active Substance: OMEGA-3-ACID ETHYL ESTERS
  33. BLINDED ONDANSETRON HYDROCHLORIDE [Suspect]
     Active Substance: ONDANSETRON HYDROCHLORIDE
  34. BLINDED ONDANSETRON HYDROCHLORIDE [Suspect]
     Active Substance: ONDANSETRON HYDROCHLORIDE
  35. BLINDED PARACETAMOL [Suspect]
     Active Substance: ACETAMINOPHEN
  36. BLINDED PAZOPANIB [Suspect]
     Active Substance: PAZOPANIB
  37. BLINDED PAZOPANIB [Suspect]
     Active Substance: PAZOPANIB
  38. BLINDED PUMPKIN [Suspect]
     Active Substance: PUMPKIN
  39. BLINDED REMIFENTANIL HYDROCHLORIDE [Suspect]
     Active Substance: REMIFENTANIL HYDROCHLORIDE
  40. BLINDED SALMETEROL XINAFOATE [Suspect]
     Active Substance: SALMETEROL XINAFOATE
  41. BLINDED SODIUM RABEPRAZOLE [Suspect]
     Active Substance: RABEPRAZOLE SODIUM
  42. BLINDED SPIRONOLACTONE [Suspect]
     Active Substance: SPIRONOLACTONE
  43. BLINDED SUXAMETHONIUM [Suspect]
     Active Substance: SUCCINYLCHOLINE
  44. BLINDED TAMSULOSIN HYDROCHLORIDE [Suspect]
     Active Substance: TAMSULOSIN HYDROCHLORIDE
  45. BLINDED TESTOSTERONE [Suspect]
     Active Substance: TESTOSTERONE
  46. BLINDED TRANYLCYPROMINE SULPHATE [Suspect]
     Active Substance: TRANYLCYPROMINE SULFATE
  47. BLINDED TRIAMCINOLONE [Suspect]
     Active Substance: TRIAMCINOLONE
  48. BLINDED XYLOMETAZOLINE [Suspect]
     Active Substance: XYLOMETAZOLINE
  49. BLINDED OMEPRAZOLE [Suspect]
     Active Substance: OMEPRAZOLE
  50. BLINDED PHOLCODINE [Suspect]
     Active Substance: PHOLCODINE
  51. BLINDED POLYMYXIN B SULPHATE [Suspect]
     Active Substance: POLYMYXIN B SULFATE
  52. BLINDED POTASSIUM NITRATE + SODIUM FLUORIDE [Suspect]
     Active Substance: POTASSIUM NITRATE\SODIUM FLUORIDE
  53. BLINDED RETIGABINE [Suspect]
     Active Substance: EZOGABINE
  54. BLINDED RIFAMPICIN [Suspect]
     Active Substance: RIFAMPIN
  55. BLINDED ROSUVASTATIN CALCIUM [Suspect]
     Active Substance: ROSUVASTATIN CALCIUM
  56. BLINDED SALBUTAMOL SULPHATE [Suspect]
     Active Substance: ALBUTEROL SULFATE
  57. BLINDED SODIUM STIBOGLUCONATE [Suspect]
     Active Substance: SODIUM STIBOGLUCONATE
  58. BLINDED TRAMADOL HYDROCHLORIDE [Suspect]
     Active Substance: TRAMADOL HYDROCHLORIDE
  59. BLINDED TRAMETINIB [Suspect]
     Active Substance: TRAMETINIB
  60. BLINDED UNKNOWN [Suspect]
     Active Substance: UNSPECIFIED INGREDIENT
  61. BLINDED UNKNOWN [Suspect]
     Active Substance: UNSPECIFIED INGREDIENT
  62. BLINDED VINCRISTINE [Suspect]
     Active Substance: VINCRISTINE
  63. BLINDED OFLOXACIN [Suspect]
     Active Substance: OFLOXACIN
  64. BLINDED OMEPRAZOLE [Suspect]
     Active Substance: OMEPRAZOLE
  65. BLINDED OXALIPLATIN [Suspect]
     Active Substance: OXALIPLATIN
  66. BLINDED PARACETAMOL [Suspect]
     Active Substance: ACETAMINOPHEN
  67. BLINDED PARACETAMOL + CODEINE [Suspect]
     Active Substance: ACETAMINOPHEN\CODEINE PHOSPHATE
  68. BLINDED PHENOBARBITAL [Suspect]
     Active Substance: PHENOBARBITAL
  69. BLINDED PHENOXYMETHYLPENICILLIN POTASSIUM [Suspect]
     Active Substance: PENICILLIN V POTASSIUM
  70. BLINDED PIPERACILLIN SODIUM + TAZOBACTAM SODIUM [Suspect]
     Active Substance: PIPERACILLIN SODIUM\TAZOBACTAM SODIUM
  71. BLINDED PROCHLORPERAZINE [Suspect]
     Active Substance: PROCHLORPERAZINE
  72. BLINDED PSEUDOEPHEDRINE HYDROCHLORIDE [Suspect]
     Active Substance: PSEUDOEPHEDRINE HYDROCHLORIDE
  73. BLINDED PYRIMETHAMINE [Suspect]
     Active Substance: PYRIMETHAMINE
  74. BLINDED ROPINIROLE HYDROCHLORIDE [Suspect]
     Active Substance: ROPINIROLE HYDROCHLORIDE
  75. BLINDED ROSUVASTATIN CALCIUM [Suspect]
     Active Substance: ROSUVASTATIN CALCIUM
  76. BLINDED SB767905 [Suspect]
     Active Substance: ALVIMOPAN
  77. BLINDED SABCOMELINE [Suspect]
     Active Substance: SABCOMELINE
  78. BLINDED SALBUTAMOL SULPHATE [Suspect]
     Active Substance: ALBUTEROL SULFATE
  79. BLINDED SUMATRIPTAN SUCCINATE [Suspect]
     Active Substance: SUMATRIPTAN SUCCINATE
  80. BLINDED TELMISARTAN [Suspect]
     Active Substance: TELMISARTAN
  81. BLINDED TENOFOVIR DISOPROXIL FUMARATE [Suspect]
     Active Substance: TENOFOVIR DISOPROXIL FUMARATE
  82. BLINDED TERBINAFINE [Suspect]
     Active Substance: TERBINAFINE
  83. BLINDED TOPIRAMATE [Suspect]
     Active Substance: TOPIRAMATE
  84. BLINDED TRANYLCYPROMINE SULPHATE [Suspect]
     Active Substance: TRANYLCYPROMINE SULFATE
  85. BLINDED TRETINOIN [Suspect]
     Active Substance: TRETINOIN
  86. BLINDED TRIAMCINOLONE ACETONIDE [Suspect]
     Active Substance: TRIAMCINOLONE ACETONIDE
  87. BLINDED VALPROIC ACID [Suspect]
     Active Substance: VALPROIC ACID
  88. BLINDED VANCOMYCIN [Suspect]
     Active Substance: VANCOMYCIN
  89. BLINDED VANCOMYCIN [Suspect]
     Active Substance: VANCOMYCIN
  90. BLINDED ZIDOVUDINE [Suspect]
     Active Substance: ZIDOVUDINE
  91. BLINDED PANITUMUMAB [Suspect]
     Active Substance: PANITUMUMAB
  92. PANTOPRAZOLE SODIUM [Suspect]
     Active Substance: PANTOPRAZOLE SODIUM
  93. BLINDED PHENYLEPHRINE HYDROCHLORIDE [Suspect]
     Active Substance: PHENYLEPHRINE HYDROCHLORIDE
  94. BLINDED PIBOSEROD [Suspect]
     Active Substance: PIBOSEROD
  95. BLINDED POTASSIUM CHLORIDE [Suspect]
     Active Substance: POTASSIUM CHLORIDE
  96. BLINDED PROCHLORPERAZINE [Suspect]
     Active Substance: PROCHLORPERAZINE
  97. BLINDED PYRIMETHAMINE + DAPSONE [Suspect]
     Active Substance: DAPSONE\PYRIMETHAMINE
  98. BLINDED REMIFENTANIL HYDROCHLORIDE [Suspect]
     Active Substance: REMIFENTANIL HYDROCHLORIDE
  99. BLINDED ROPINIROLE HYDROCHLORIDE [Suspect]
     Active Substance: ROPINIROLE HYDROCHLORIDE
  100. BLINDED STRONTIUM CHLORIDE [Suspect]
     Active Substance: STRONTIUM CHLORIDE
  101. BLINDED SUMATRIPTAN SUCCINATE [Suspect]
     Active Substance: SUMATRIPTAN SUCCINATE
  102. BLINDED SUNITINIB MALATE [Suspect]
     Active Substance: SUNITINIB MALATE
  103. BLINDED TENOFOVIR DISOPROXIL FUMARATE [Suspect]
     Active Substance: TENOFOVIR DISOPROXIL FUMARATE
  104. BLINDED VENLAFAXINE HYDROCHLORIDE [Suspect]
     Active Substance: VENLAFAXINE HYDROCHLORIDE
  105. BLINDED ZANAMIVIR [Suspect]
     Active Substance: ZANAMIVIR
  106. TENOZET [Suspect]
     Active Substance: TENOFOVIR DISOPROXIL FUMARATE
     Dosage: 300 MG, UNK
     Route: 048
  107. BLINDED OFATUMUMAB [Suspect]
     Active Substance: OFATUMUMAB
  108. BLINDED OFATUMUMAB [Suspect]
     Active Substance: OFATUMUMAB
  109. BLINDED ORLISTAT [Suspect]
     Active Substance: ORLISTAT
  110. BLINDED PARACETAMOL + CODEINE [Suspect]
     Active Substance: ACETAMINOPHEN\CODEINE PHOSPHATE
  111. BLINDED PAZOPANIB [Suspect]
     Active Substance: PAZOPANIB
  112. BLINDED PHENYLEPHRINE HYDROCHLORIDE [Suspect]
     Active Substance: PHENYLEPHRINE HYDROCHLORIDE
  113. PLACEBO [Suspect]
     Active Substance: UNSPECIFIED INGREDIENT
  114. BLINDED PRAMIPEXOLE HYDROCHLORIDE [Suspect]
     Active Substance: PRAMIPEXOLE DIHYDROCHLORIDE
  115. BLINDED PRAMIPEXOLE HYDROCHLORIDE [Suspect]
     Active Substance: PRAMIPEXOLE DIHYDROCHLORIDE
  116. BLINDED PROCHLORPERAZINE [Suspect]
     Active Substance: PROCHLORPERAZINE
  117. BLINDED PROPRANOLOL HYDROCHLORIDE [Suspect]
     Active Substance: PROPRANOLOL HYDROCHLORIDE
  118. BLINDED RAMIPRIL [Suspect]
     Active Substance: RAMIPRIL
  119. BLINDED RETIGABINE [Suspect]
     Active Substance: EZOGABINE
  120. BLINDED ROSIGLITAZONE MALEATE [Suspect]
     Active Substance: ROSIGLITAZONE MALEATE
  121. BLINDED SUMATRIPTAN SUCCINATE [Suspect]
     Active Substance: SUMATRIPTAN SUCCINATE
  122. BLINDED TACROLIMUS CAPSULES [Suspect]
     Active Substance: TACROLIMUS
  123. BLINDED TETRACYCLINE HYDROCHLORIDE [Suspect]
     Active Substance: TETRACYCLINE HYDROCHLORIDE
  124. BLINDED THEOPHYLLINE CR TABLET 200 MG [Suspect]
     Active Substance: THEOPHYLLINE ANHYDROUS
  125. BLINDED THYROXINE SODIUM [Suspect]
     Active Substance: LEVOTHYROXINE SODIUM
  126. BLINDED TOPIRAMATE [Suspect]
     Active Substance: TOPIRAMATE
  127. BLINDED TOPOTECAN HYDROCHLORIDE [Suspect]
     Active Substance: TOPOTECAN HYDROCHLORIDE
  128. BLINDED TRETINOIN [Suspect]
     Active Substance: TRETINOIN
  129. BLINDED TRIMETHOPRIM [Suspect]
     Active Substance: TRIMETHOPRIM
  130. BLINDED ZANAMIVIR [Suspect]
     Active Substance: ZANAMIVIR
  131. BLINDED ZANAMIVIR [Suspect]
     Active Substance: ZANAMIVIR
  132. OMEGA-3-ACID ETHYL ESTERS. [Suspect]
     Active Substance: OMEGA-3-ACID ETHYL ESTERS
  133. BLINDED ONDANSETRON HYDROCHLORIDE [Suspect]
     Active Substance: ONDANSETRON HYDROCHLORIDE
  134. BLINDED PACLITAXEL [Suspect]
     Active Substance: PACLITAXEL
  135. BLINDED PAROXETINE HYDROCHLORIDE [Suspect]
     Active Substance: PAROXETINE HYDROCHLORIDE
  136. BLINDED PIROXICAM [Suspect]
     Active Substance: PIROXICAM
  137. PLACEBO [Suspect]
     Active Substance: UNSPECIFIED INGREDIENT
  138. BLINDED PRAVASTATIN [Suspect]
     Active Substance: PRAVASTATIN\PRAVASTATIN SODIUM
  139. BLINDED PSEUDOEPHEDRINE [Suspect]
     Active Substance: PSEUDOEPHEDRINE
  140. BLINDED QUETIAPINE [Suspect]
     Active Substance: QUETIAPINE
  141. BLINDED RANITIDINE HYDROCHLORIDE [Suspect]
     Active Substance: RANITIDINE HYDROCHLORIDE
  142. BLINDED RANITIDINE HYDROCHLORIDE [Suspect]
     Active Substance: RANITIDINE HYDROCHLORIDE
  143. BLINDED RISPERIDONE [Suspect]
     Active Substance: RISPERIDONE
  144. BLINDED ROSIGLITAZONE MALEATE [Suspect]
     Active Substance: ROSIGLITAZONE MALEATE
  145. BLINDED ROTAVIRUS VACCINE LIQUID FORMULATION [Suspect]
     Active Substance: ROTAVIRUS VACCINE, LIVE, ORAL, TETRAVALENT
  146. BLINDED TRAMETINIB [Suspect]
     Active Substance: TRAMETINIB
  147. BLINDED TRIAMCINOLONE ACETONIDE [Suspect]
     Active Substance: TRIAMCINOLONE ACETONIDE
  148. BLINDED TRIAMTERENE [Suspect]
     Active Substance: TRIAMTERENE
  149. BLINDED TRICLOSAN [Suspect]
     Active Substance: TRICLOSAN
  150. BLINDED TRIFLUOPERAZINE HYDROCHLORIDE [Suspect]
     Active Substance: TRIFLUOPERAZINE HYDROCHLORIDE
  151. BLINDED TRIMETHOPRIM [Suspect]
     Active Substance: TRIMETHOPRIM
  152. BLINDED VALACICLOVIR HYDROCHLORIDE [Suspect]
     Active Substance: VALACYCLOVIR HYDROCHLORIDE
  153. BLINDED WARFARIN SODIUM [Suspect]
     Active Substance: WARFARIN SODIUM
  154. TENOFOVIR DISOPROXIL FUMARATE [Suspect]
     Active Substance: TENOFOVIR DISOPROXIL FUMARATE
     Indication: CHRONIC HEPATITIS B
     Dosage: 300 MG, UNK
     Route: 048
  155. BLINDED OLANZAPINE [Suspect]
     Active Substance: OLANZAPINE
  156. BLINDED OLANZAPINE [Suspect]
     Active Substance: OLANZAPINE
  157. BLINDED ONDANSETRON HYDROCHLORIDE [Suspect]
     Active Substance: ONDANSETRON HYDROCHLORIDE
  158. BLINDED PARACETAMOL [Suspect]
     Active Substance: ACETAMINOPHEN
  159. BLINDED PAROXETINE HYDROCHLORIDE [Suspect]
     Active Substance: PAROXETINE HYDROCHLORIDE
  160. BLINDED PIOGLITAZONE [Suspect]
     Active Substance: PIOGLITAZONE
  161. BLINDED PIOGLITAZONE [Suspect]
     Active Substance: PIOGLITAZONE
  162. BLINDED PIRACETAM [Suspect]
     Active Substance: PIRACETAM
  163. PLACEBO [Suspect]
     Active Substance: UNSPECIFIED INGREDIENT
  164. BLINDED PROPAFENONE HYDROCHLORIDE [Suspect]
     Active Substance: PROPAFENONE HYDROCHLORIDE
  165. BLINDED PYRIMETHAMINE + SULFADOXINE [Suspect]
     Active Substance: PYRIMETHAMINE\SULFADOXINE
  166. BLINDED QUETIAPINE [Suspect]
     Active Substance: QUETIAPINE
  167. BLINDED RIFAMPICIN [Suspect]
     Active Substance: RIFAMPIN
  168. BLINDED SALBUTAMOL SULPHATE [Suspect]
     Active Substance: ALBUTEROL SULFATE
  169. BLINDED SIROLIMUS [Suspect]
     Active Substance: SIROLIMUS
  170. BLINDED SODIUM STIBOGLUCONATE [Suspect]
     Active Substance: SODIUM STIBOGLUCONATE
  171. BLINDED SUMATRIPTAN SUCCINATE [Suspect]
     Active Substance: SUMATRIPTAN SUCCINATE
  172. BLINDED TOPOTECAN HYDROCHLORIDE [Suspect]
     Active Substance: TOPOTECAN HYDROCHLORIDE
  173. BLINDED TOPOTECAN HYDROCHLORIDE [Suspect]
     Active Substance: TOPOTECAN HYDROCHLORIDE
  174. BLINDED TOPOTECAN HYDROCHLORIDE [Suspect]
     Active Substance: TOPOTECAN HYDROCHLORIDE
  175. BLINDED TRAMADOL HYDROCHLORIDE [Suspect]
     Active Substance: TRAMADOL HYDROCHLORIDE
  176. BLINDED TRAMETINIB [Suspect]
     Active Substance: TRAMETINIB
  177. BLINDED TRASTUZUMAB [Suspect]
     Active Substance: TRASTUZUMAB
  178. BLINDED TRIAMCINOLONE ACETONIDE [Suspect]
     Active Substance: TRIAMCINOLONE ACETONIDE
  179. BLINDED VALACICLOVIR HYDROCHLORIDE [Suspect]
     Active Substance: VALACYCLOVIR HYDROCHLORIDE

REACTIONS (4)
  - Foot fracture [Unknown]
  - Arthralgia [Unknown]
  - Osteoporosis [Unknown]
  - Eye disorder [Unknown]
